FAERS Safety Report 9894384 (Version 2)
Quarter: 2014Q1

REPORT INFORMATION
  Report Type: Spontaneous
  Country: US (occurrence: US)
  Receive Date: 20140213
  Receipt Date: 20140213
  Transmission Date: 20141002
  Serious: Yes (Other)
  Sender: FDA-Public Use
  Company Number: US-GE HEALTHCARE MEDICAL DIAGNOSTICS-OSCN-PR-0806S-0375

PATIENT
  Sex: Female

DRUGS (16)
  1. OMNISCAN [Suspect]
     Indication: HEADACHE
     Route: 042
     Dates: start: 20040401, end: 20040401
  2. GADOLINIUM (UNSPECIFIED) [Suspect]
     Indication: AORTIC ANEURYSM
     Route: 042
     Dates: start: 20030227, end: 20030227
  3. VISIPAQUE [Concomitant]
     Indication: PRODUCT USED FOR UNKNOWN INDICATION
  4. OMNIPAQUE [Concomitant]
     Indication: PRODUCT USED FOR UNKNOWN INDICATION
  5. LISINOPRIL HCT [Concomitant]
  6. LEVOTHYROXINE [Concomitant]
  7. CLONAZEPAM [Concomitant]
  8. TRAZODONE [Concomitant]
  9. LIPITOR [Concomitant]
  10. OMEPRAZOLE [Concomitant]
  11. MIRTAZAPINE [Concomitant]
  12. LEXAPRO [Concomitant]
  13. ALEVE [Concomitant]
  14. CENTRUM SILVER [Concomitant]
  15. CIPROFLOXACIN [Concomitant]
  16. VICODIN [Concomitant]

REACTIONS (1)
  - Nephrogenic systemic fibrosis [Not Recovered/Not Resolved]
